FAERS Safety Report 4898553-2 (Version None)
Quarter: 2006Q1

REPORT INFORMATION
  Report Type: 
  Country: None (occurrence: None)
  Receive Date: 20060202
  Receipt Date: 20060126
  Transmission Date: 20060701
  Serious: Yes (Hospitalization)
  Sender: FDA-Public Use
  Company Number: FR-AVENTIS-200610288FR

PATIENT
  Age: 34 Year
  Sex: Male
  Weight: 63 kg

DRUGS (5)
  1. BIRODOGYL [Suspect]
     Indication: TOOTH EXTRACTION
     Route: 048
     Dates: start: 20051201, end: 20051203
  2. PROFENID ^PHARMA RHODIA^ [Suspect]
     Indication: TOOTH EXTRACTION
     Route: 048
     Dates: start: 20051201, end: 20051205
  3. AUGMENTIN '125' [Suspect]
     Route: 048
     Dates: start: 20051203, end: 20051205
  4. ERYTHROMYCIN [Concomitant]
     Dates: start: 20051205, end: 20051205
  5. PRISTINAMYCINE [Concomitant]
     Dates: start: 20051205

REACTIONS (10)
  - CHILLS [None]
  - FACE OEDEMA [None]
  - HYPERSENSITIVITY [None]
  - LARYNGEAL DISCOMFORT [None]
  - PRURIGO [None]
  - PRURITUS [None]
  - PYREXIA [None]
  - RASH ERYTHEMATOUS [None]
  - RASH PUSTULAR [None]
  - VOMITING [None]
